FAERS Safety Report 5913067-6 (Version None)
Quarter: 2008Q4

REPORT INFORMATION
  Report Type: 
  Country: None (occurrence: None)
  Receive Date: 20081008
  Receipt Date: 20081008
  Transmission Date: 20090506
  Serious: Yes (Disabling)
  Sender: FDA-Public Use
  Company Number: None

PATIENT
  Age: 43 Year
  Sex: Female
  Weight: 74.3899 kg

DRUGS (1)
  1. LAMICTAL [Suspect]

REACTIONS (9)
  - ABDOMINAL DISCOMFORT [None]
  - AMNESIA [None]
  - DISORIENTATION [None]
  - DIZZINESS [None]
  - FATIGUE [None]
  - HEADACHE [None]
  - MOOD SWINGS [None]
  - NAUSEA [None]
  - PRODUCT QUALITY ISSUE [None]
